FAERS Safety Report 5939909-6 (Version None)
Quarter: 2008Q4

REPORT INFORMATION
  Report Type: 
  Country: None (occurrence: None)
  Receive Date: 20081030
  Receipt Date: 20081030
  Transmission Date: 20090506
  Serious: Yes (Hospitalization)
  Sender: FDA-Public Use
  Company Number: None

PATIENT
  Age: 7 Year
  Sex: Male
  Weight: 20.4119 kg

DRUGS (1)
  1. INVEGA [Suspect]
     Indication: BIPOLAR DISORDER
     Dosage: 1/DAY PO
     Route: 048
     Dates: start: 20081022, end: 20081023

REACTIONS (12)
  - DYSPNOEA [None]
  - DYSTONIA [None]
  - FALL [None]
  - GRUNTING [None]
  - LETHARGY [None]
  - MIOSIS [None]
  - MUSCLE TIGHTNESS [None]
  - NASOPHARYNGITIS [None]
  - NONSPECIFIC REACTION [None]
  - SCREAMING [None]
  - SKIN LACERATION [None]
  - SWOLLEN TONGUE [None]
